FAERS Safety Report 16789381 (Version 1)
Quarter: 2019Q3

REPORT INFORMATION
  Report Type: Spontaneous
  Country: US (occurrence: US)
  Receive Date: 20190910
  Receipt Date: 20190910
  Transmission Date: 20191005
  Serious: No
  Sender: FDA-Public Use
  Company Number: US-CIPLA LTD.-2019US01778

PATIENT

DRUGS (1)
  1. ALENDRONATE [Suspect]
     Active Substance: ALENDRONATE SODIUM
     Indication: ARTHRITIS
     Dosage: 70 MILLIGRAM, ONCE A WEEK (ON EVERY TUESDAY MORNING), SINCE OVER A YEAR
     Route: 048

REACTIONS (3)
  - Somnolence [Unknown]
  - Extra dose administered [Unknown]
  - Disorientation [Unknown]

NARRATIVE: CASE EVENT DATE: 20190329
